FAERS Safety Report 9290466 (Version 1)
Quarter: 2013Q2

REPORT INFORMATION
  Report Type: Report from Study
  Country: CO (occurrence: CO)
  Receive Date: 20130515
  Receipt Date: 20130515
  Transmission Date: 20140414
  Serious: Yes (Hospitalization)
  Sender: FDA-Public Use
  Company Number: CO-ROCHE-1223763

PATIENT
  Sex: Male

DRUGS (2)
  1. LUCENTIS [Suspect]
     Indication: RETINAL DEGENERATION
     Route: 050
     Dates: start: 201001
  2. LOSARTAN [Concomitant]

REACTIONS (1)
  - Rectal haemorrhage [Recovered/Resolved]
